FAERS Safety Report 4361213-0 (Version None)
Quarter: 2004Q2

REPORT INFORMATION
  Report Type: 
  Country: None (occurrence: None)
  Receive Date: 20040514
  Receipt Date: 20030915
  Transmission Date: 20050107
  Serious: Yes (Other)
  Sender: FDA-Public Use
  Company Number: 03-255-0084

PATIENT
  Age: 76 Year
  Sex: Male
  Weight: 95.2554 kg

DRUGS (12)
  1. MITOMYCIN [Suspect]
     Indication: BLADDER CANCER
     Dosage: 40MG INTRAVESICAL X 1 WKLY
     Route: 043
     Dates: start: 20030722, end: 20030819
  2. ZOLADEX [Concomitant]
  3. NIASPAN [Concomitant]
  4. LOPRESSOR [Concomitant]
  5. PLAVIX [Concomitant]
  6. DIGOXIN [Concomitant]
  7. METHADONE HCL [Concomitant]
  8. ASPIRIN [Concomitant]
  9. CLONAZEPAM [Concomitant]
  10. LESCOL [Concomitant]
  11. PROTONIX [Concomitant]
  12. REMINYL [Concomitant]

REACTIONS (2)
  - DYSURIA [None]
  - POLLAKIURIA [None]
